FAERS Safety Report 5186520-3 (Version None)
Quarter: 2006Q4

REPORT INFORMATION
  Report Type: 
  Country: None (occurrence: None)
  Receive Date: 20061213
  Receipt Date: 20061201
  Transmission Date: 20070319
  Serious: Yes (Hospitalization, Other)
  Sender: FDA-Public Use
  Company Number: PR-2006-030758

PATIENT
  Age: 86 Year
  Sex: Female
  Weight: 64 kg

DRUGS (22)
  1. LEUKINE [Suspect]
     Indication: B-CELL LYMPHOMA
     Dosage: 75 UG/DAY, 3X/WEEK, SUBCUTANEOUS
     Route: 058
     Dates: start: 20061006
  2. RITUXIMAB(RITUXIMAB) [Suspect]
     Indication: B-CELL LYMPHOMA
     Dosage: 385 MG/M2, 1 DOSE, CYCLE 1, INTRAVENOUS; 375 UG/M2, INTRAVENOUS
     Route: 042
     Dates: start: 20061004, end: 20061004
  3. RITUXIMAB(RITUXIMAB) [Suspect]
     Indication: B-CELL LYMPHOMA
     Dosage: 385 MG/M2, 1 DOSE, CYCLE 1, INTRAVENOUS; 375 UG/M2, INTRAVENOUS
     Route: 042
     Dates: start: 20060101
  4. CYCLOPHOSPHAMIDE [Suspect]
     Indication: B-CELL LYMPHOMA
     Dosage: 750 MG/M2, 1 DOSE, CYCLE 1, INTRAVENOUS
     Route: 042
     Dates: start: 20061005, end: 20061005
  5. CYCLOPHOSPHAMIDE [Suspect]
     Indication: B-CELL LYMPHOMA
     Dosage: 750 MG/M2, 1 DOSE, CYCLE 1, INTRAVENOUS
     Route: 042
     Dates: start: 20060101
  6. DOXORUBICIN HCL [Suspect]
     Indication: B-CELL LYMPHOMA
     Dosage: 50 MG/M2, 1 DOSE, CYCLE 1, INTRAVENOUS
     Route: 042
     Dates: start: 20061005, end: 20061005
  7. DOXORUBICIN HCL [Suspect]
     Indication: B-CELL LYMPHOMA
     Dosage: 50 MG/M2, 1 DOSE, CYCLE 1, INTRAVENOUS
     Route: 042
     Dates: start: 20060101
  8. VINCRISTINE [Suspect]
     Indication: B-CELL LYMPHOMA
     Dosage: 1.4 MG/M2, CYCLE 1, INTRAVENOUS
     Route: 042
     Dates: start: 20061005, end: 20061005
  9. VINCRISTINE [Suspect]
     Indication: B-CELL LYMPHOMA
     Dosage: 1.4 MG/M2, CYCLE 1, INTRAVENOUS
     Route: 042
     Dates: start: 20060101
  10. NEULASTA [Suspect]
     Indication: B-CELL LYMPHOMA
     Dosage: 3 MG/M2, 1 DOSE, SUBCUTANEOUS
     Route: 058
     Dates: start: 20061006, end: 20061006
  11. NEULASTA [Suspect]
     Indication: B-CELL LYMPHOMA
     Dosage: 3 MG/M2, 1 DOSE, SUBCUTANEOUS
     Route: 058
     Dates: start: 20060101
  12. NORVASC [Concomitant]
  13. LIPITOR [Concomitant]
  14. TEMAZEPAM [Concomitant]
  15. ALLOPURINOL SODIUM [Concomitant]
  16. AMBIEN [Concomitant]
  17. LOVENOX [Concomitant]
  18. ALBUTEROL [Concomitant]
  19. PREDNISONE [Concomitant]
  20. COUMADIN [Concomitant]
  21. PERCOCET (OXYCODONE HYDROCHOLORIDE) [Concomitant]
  22. LASIX [Concomitant]

REACTIONS (11)
  - AORTIC VALVE CALCIFICATION [None]
  - BLOOD UREA INCREASED [None]
  - CARDIO-RESPIRATORY ARREST [None]
  - DEEP VEIN THROMBOSIS [None]
  - DILATATION ATRIAL [None]
  - PERICARDIAL EFFUSION [None]
  - PLATELET COUNT INCREASED [None]
  - PLEURAL EFFUSION [None]
  - PULMONARY EMBOLISM [None]
  - PULMONARY OEDEMA [None]
  - WHITE BLOOD CELL COUNT INCREASED [None]
